FAERS Safety Report 9348930 (Version 3)
Quarter: 2015Q2

REPORT INFORMATION
  Report Type: Spontaneous
  Country: CA (occurrence: CA)
  Receive Date: 20130614
  Receipt Date: 20150612
  Transmission Date: 20150821
  Serious: Yes (Hospitalization, Other)
  Sender: FDA-Public Use
  Company Number: CA-009507513-1306CAN005422

PATIENT
  Age: 36 Year
  Sex: Female

DRUGS (17)
  1. INTRON A [Suspect]
     Active Substance: INTERFERON ALFA-2B
     Indication: PRODUCT USED FOR UNKNOWN INDICATION
     Route: 065
  2. PEGINTERFERON ALFA-2B [Interacting]
     Active Substance: PEGINTERFERON ALFA-2B
     Dosage: 48.0 MG, UNK
     Route: 065
  3. TACROLIMUS. [Interacting]
     Active Substance: TACROLIMUS
     Dosage: UNK
     Route: 065
  4. TACROLIMUS. [Interacting]
     Active Substance: TACROLIMUS
     Dosage: 0.5 MG, 2 EVERY 1 DAY
     Route: 065
  5. VICTRELIS TRIPLE [Interacting]
     Active Substance: BOCEPREVIR\PEGINTERFERON ALFA-2B\RIBAVIRIN
     Indication: PRODUCT USED FOR UNKNOWN INDICATION
     Route: 065
  6. PROGRAF [Interacting]
     Active Substance: TACROLIMUS\TACROLIMUS ANHYDROUS
     Dosage: 0.5 MG, 1 EVERY 3 WEEKS
     Route: 065
  7. WARFARIN [Concomitant]
     Active Substance: WARFARIN
     Route: 065
  8. PEGETRON [Interacting]
     Active Substance: PEGINTERFERON ALFA-2B\RIBAVIRIN
     Indication: CHRONIC HEPATITIS C
     Dosage: 200.0 MG, 2 EVERY 1 DAY
     Route: 065
  9. VICTRELIS [Interacting]
     Active Substance: BOCEPREVIR
     Indication: PRODUCT USED FOR UNKNOWN INDICATION
     Dosage: 800.0 MG, 3 EVERY 1 DAY
     Route: 065
  10. PROGRAF [Interacting]
     Active Substance: TACROLIMUS\TACROLIMUS ANHYDROUS
     Dosage: 0.5 MG, 2 EVERY 1 DAY
     Route: 065
  11. RIBAVIRIN. [Interacting]
     Active Substance: RIBAVIRIN
     Indication: CHRONIC HEPATITIS C
     Route: 065
  12. PEGINTERFERON ALFA-2A [Interacting]
     Active Substance: PEGINTERFERON ALFA-2A
     Indication: CHRONIC HEPATITIS C
     Route: 065
  13. PEGETRON [Interacting]
     Active Substance: PEGINTERFERON ALFA-2B\RIBAVIRIN
     Dosage: 400.0 MG, 2 EVERY 1 DAY
     Route: 065
  14. PEGINTERFERON ALFA-2B [Interacting]
     Active Substance: PEGINTERFERON ALFA-2B
     Indication: PRODUCT USED FOR UNKNOWN INDICATION
     Dosage: 400.0, 2 EVERY 1 DAY
     Route: 065
  15. MYCOPHENOLATE MOFETIL. [Interacting]
     Active Substance: MYCOPHENOLATE MOFETIL
     Indication: PRODUCT USED FOR UNKNOWN INDICATION
     Route: 065
  16. PROGRAF [Interacting]
     Active Substance: TACROLIMUS\TACROLIMUS ANHYDROUS
     Dosage: UNK
     Route: 065
  17. TACROLIMUS. [Interacting]
     Active Substance: TACROLIMUS
     Indication: PRODUCT USED FOR UNKNOWN INDICATION
     Dosage: 0.5 MG, 3 EVERY 1 WEEK
     Route: 065

REACTIONS (7)
  - Neutropenia [Unknown]
  - Anaemia [Unknown]
  - Drug ineffective [Unknown]
  - Drug level increased [Unknown]
  - Hepatitis cholestatic [Unknown]
  - Ascites [Unknown]
  - Drug interaction [Unknown]
